FAERS Safety Report 5297219-7 (Version None)
Quarter: 2007Q2

REPORT INFORMATION
  Report Type: 
  Country: None (occurrence: None)
  Receive Date: 20070416
  Receipt Date: 20070404
  Transmission Date: 20071010
  Serious: Yes (Death, Life-Threatening, Other)
  Sender: FDA-Public Use
  Company Number: GB-JNJFOC-20070105054

PATIENT
  Sex: Female
  Weight: 72 kg

DRUGS (8)
  1. REMICADE [Suspect]
     Indication: DRUG USE FOR UNKNOWN INDICATION
     Route: 042
  2. METHOTREXATE [Concomitant]
  3. PREDNISOLONE [Concomitant]
  4. DIPYRIDAMOLE [Concomitant]
  5. FOLIC ACID [Concomitant]
  6. HYPROMELLOSE [Concomitant]
  7. LOSARTAN POSTASSIUM [Concomitant]
  8. PARACETAMOL [Concomitant]

REACTIONS (4)
  - AGRANULOCYTOSIS [None]
  - AMYLOIDOSIS [None]
  - RHEUMATOID ARTHRITIS [None]
  - SEPSIS [None]
